FAERS Safety Report 9801005 (Version 1)
Quarter: 2014Q1

REPORT INFORMATION
  Report Type: Spontaneous
  Country: FR (occurrence: FR)
  Receive Date: 20140107
  Receipt Date: 20140107
  Transmission Date: 20141002
  Serious: Yes (Life-Threatening, Hospitalization)
  Sender: FDA-Public Use
  Company Number: FR-UCBSA-107729

PATIENT
  Age: 68 Year
  Sex: Male

DRUGS (11)
  1. KEPPRA [Suspect]
     Route: 048
     Dates: start: 20131206, end: 20131215
  2. EFFERALGAN CODEINE [Suspect]
     Route: 048
     Dates: start: 201312, end: 201312
  3. LASILIX [Concomitant]
     Dosage: UNKNOWN
  4. REPAGLINIDE [Concomitant]
     Dosage: UNKNOWN
  5. REPAGLINIDE [Concomitant]
     Dosage: UNKNOWN
  6. ATORVASTATIN [Concomitant]
     Dosage: UNKNOWN
  7. COUMADINE [Concomitant]
     Dosage: UNKNOWN
  8. CALCIDOSE VITAMIN D [Concomitant]
     Dosage: UNKNOWN
  9. ATENOLOL [Concomitant]
     Dosage: UNKNOWN
  10. STILNOX [Concomitant]
     Dosage: UNKNOWN
  11. SERESTA [Concomitant]
     Dosage: UNKNOWN

REACTIONS (1)
  - Hyperammonaemic encephalopathy [Recovering/Resolving]
